FAERS Safety Report 5917876-9 (Version None)
Quarter: 2008Q4

REPORT INFORMATION
  Report Type: 
  Country: None (occurrence: None)
  Receive Date: 20081014
  Receipt Date: 20081006
  Transmission Date: 20090506
  Serious: Yes (Life-Threatening, Hospitalization)
  Sender: FDA-Public Use
  Company Number: FR-ASTRAZENECA-2008CG01347

PATIENT
  Age: 23712 Day
  Sex: Female

DRUGS (4)
  1. DIPRIVAN [Suspect]
     Indication: INDUCTION OF ANAESTHESIA
     Route: 042
     Dates: start: 20080901, end: 20080901
  2. SUFENTA PRESERVATIVE FREE [Suspect]
     Indication: INDUCTION OF ANAESTHESIA
     Route: 042
     Dates: start: 20080901, end: 20080901
  3. NIMBEX [Suspect]
     Indication: INDUCTION OF ANAESTHESIA
     Route: 042
     Dates: start: 20080901, end: 20080901
  4. CEFAMANDOLE SODIUM [Suspect]
     Indication: ANTIBIOTIC PROPHYLAXIS
     Route: 042
     Dates: start: 20080901, end: 20080901

REACTIONS (4)
  - BRONCHOSPASM [None]
  - CIRCULATORY COLLAPSE [None]
  - HYPOTENSION [None]
  - RASH [None]
